FAERS Safety Report 7955207-3 (Version None)
Quarter: 2011Q4

REPORT INFORMATION
  Report Type: 
  Country: None (occurrence: None)
  Receive Date: 20111202
  Receipt Date: 20111130
  Transmission Date: 20120403
  Serious: Yes (Other)
  Sender: FDA-Public Use
  Company Number: PHEH2011US009219

PATIENT
  Sex: Female

DRUGS (2)
  1. PROMETRIUM [Concomitant]
     Dosage: 200 MG, QD
  2. VIVELLE-DOT [Suspect]
     Dosage: 0.05 MG, QW2
     Route: 062

REACTIONS (4)
  - ASTHENIA [None]
  - FEELING ABNORMAL [None]
  - DRUG INEFFECTIVE [None]
  - DYSTHYMIC DISORDER [None]
